FAERS Safety Report 23039689 (Version 1)
Quarter: 2023Q4

REPORT INFORMATION
  Report Type: Spontaneous
  Country: ES (occurrence: ES)
  Receive Date: 20231006
  Receipt Date: 20231006
  Transmission Date: 20240110
  Serious: Yes (Other)
  Sender: FDA-Public Use
  Company Number: ES-AEMPS-1384224

PATIENT
  Age: 35 Year
  Sex: Male
  Weight: 103 kg

DRUGS (1)
  1. CIPROFLOXACIN [Suspect]
     Active Substance: CIPROFLOXACIN
     Indication: Antibiotic prophylaxis
     Dosage: 500 MILLIGRAM, UNK
     Route: 048
     Dates: start: 20230602, end: 20230607

REACTIONS (4)
  - Haematuria [Recovering/Resolving]
  - Tendonitis [Recovering/Resolving]
  - Headache [Recovering/Resolving]
  - Myalgia [Recovering/Resolving]

NARRATIVE: CASE EVENT DATE: 20230606
